FAERS Safety Report 10621603 (Version 1)
Quarter: 2014Q4

REPORT INFORMATION
  Report Type: Spontaneous
  Country: US (occurrence: None)
  Receive Date: 20141126
  Receipt Date: 20141126
  Transmission Date: 20150529
  Serious: Yes (Disabling, Other)
  Sender: FDA-Public Use
  Company Number: None

PATIENT
  Age: 3 Month
  Sex: Female

DRUGS (3)
  1. VIIBRYD [Suspect]
     Active Substance: VILAZODONE HYDROCHLORIDE
     Indication: MAJOR DEPRESSION
     Route: 048
     Dates: start: 20141012, end: 20141123
  2. VIIBRYD [Suspect]
     Active Substance: VILAZODONE HYDROCHLORIDE
     Indication: POST-TRAUMATIC STRESS DISORDER
     Route: 048
     Dates: start: 20141012, end: 20141123
  3. VIIBRYD [Suspect]
     Active Substance: VILAZODONE HYDROCHLORIDE
     Indication: ANXIETY DISORDER
     Route: 048
     Dates: start: 20141012, end: 20141123

REACTIONS (21)
  - Diarrhoea [None]
  - Headache [None]
  - Aggression [None]
  - Akathisia [None]
  - Mood swings [None]
  - Anger [None]
  - Panic attack [None]
  - Rash [None]
  - Nausea [None]
  - Drug withdrawal syndrome [None]
  - Obsessive thoughts [None]
  - Feeling abnormal [None]
  - Muscle spasms [None]
  - Arthralgia [None]
  - Asthenia [None]
  - Depression [None]
  - Hostility [None]
  - Psychotic disorder [None]
  - Muscle atrophy [None]
  - Irritability [None]
  - Anxiety [None]

NARRATIVE: CASE EVENT DATE: 20141125
